FAERS Safety Report 8547174-9 (Version None)
Quarter: 2012Q3

REPORT INFORMATION
  Report Type: 
  Country: None (occurrence: None)
  Receive Date: 20120727
  Receipt Date: 20120222
  Transmission Date: 20120928
  Serious: No
  Sender: FDA-Public Use
  Company Number: US-ASTRAZENECA-2012SE12676

PATIENT
  Sex: Male

DRUGS (1)
  1. SEROQUEL [Suspect]
     Indication: SLEEP DISORDER
     Route: 048

REACTIONS (6)
  - NERVOUSNESS [None]
  - INSOMNIA [None]
  - FRUSTRATION [None]
  - ANXIETY [None]
  - DRUG DOSE OMISSION [None]
  - OFF LABEL USE [None]
